FAERS Safety Report 22537584 (Version 7)
Quarter: 2023Q4

REPORT INFORMATION
  Report Type: Spontaneous
  Country: US (occurrence: US)
  Receive Date: 20230608
  Receipt Date: 20231106
  Transmission Date: 20240110
  Serious: Yes (Hospitalization, Other)
  Sender: FDA-Public Use
  Company Number: US-PFIZER INC-PV202300012681

PATIENT
  Age: 49 Year
  Sex: Female

DRUGS (2)
  1. CIBINQO [Suspect]
     Active Substance: ABROCITINIB
     Indication: Migraine
     Dosage: 100 MG, EVERYDAY
     Route: 048
     Dates: start: 20221122
  2. CIBINQO [Suspect]
     Active Substance: ABROCITINIB
     Indication: Dermatitis atopic

REACTIONS (7)
  - Spinal operation [Unknown]
  - Sinus operation [Unknown]
  - Herpes zoster [Unknown]
  - Pain in extremity [Unknown]
  - Hand deformity [Unknown]
  - Off label use [Unknown]
  - Peripheral swelling [Not Recovered/Not Resolved]

NARRATIVE: CASE EVENT DATE: 20221122
